FAERS Safety Report 12648275 (Version 1)
Quarter: 2016Q3

REPORT INFORMATION
  Report Type: Report from Study
  Country: BR (occurrence: BR)
  Receive Date: 20160812
  Receipt Date: 20160812
  Transmission Date: 20161109
  Serious: Yes (Death, Other)
  Sender: FDA-Public Use
  Company Number: BR-ALEXION PHARMACEUTICALS INC-A201605832

PATIENT
  Age: 2 Year
  Sex: Male

DRUGS (1)
  1. SOLIRIS [Suspect]
     Active Substance: ECULIZUMAB
     Indication: HAEMOLYTIC URAEMIC SYNDROME
     Dosage: 600 MG, SINGLE
     Route: 042
     Dates: start: 20160727, end: 20160727

REACTIONS (6)
  - Multiple organ dysfunction syndrome [Fatal]
  - Gastric haemorrhage [Unknown]
  - Brain death [Fatal]
  - Generalised oedema [Unknown]
  - Haematuria [Unknown]
  - Anaemia [Unknown]

NARRATIVE: CASE EVENT DATE: 20160803
